FAERS Safety Report 4409804-2 (Version None)
Quarter: 2004Q3

REPORT INFORMATION
  Report Type: 
  Country: None (occurrence: None)
  Receive Date: 20040726
  Receipt Date: 20040709
  Transmission Date: 20050211
  Serious: Yes (Life-Threatening, Hospitalization)
  Sender: FDA-Public Use
  Company Number: 2004-AP-00225AP

PATIENT
  Age: 58 Year
  Sex: Female

DRUGS (1)
  1. MELOXICAM (MELOXICAM) (TA) (MELOXICAM) [Suspect]
     Indication: TENDONITIS
     Dosage: (15 MG), PO
     Route: 048

REACTIONS (10)
  - ABDOMINAL DISTENSION [None]
  - ACUTE ABDOMEN [None]
  - HAEMOGLOBIN DECREASED [None]
  - HYPOTENSION [None]
  - PALLOR [None]
  - PANCREATIC NECROSIS [None]
  - PANCREATITIS HAEMORRHAGIC [None]
  - PERIPHERAL COLDNESS [None]
  - RED BLOOD CELL COUNT DECREASED [None]
  - SHOCK HAEMORRHAGIC [None]
